FAERS Safety Report 20410848 (Version 3)
Quarter: 2022Q3

REPORT INFORMATION
  Report Type: Spontaneous
  Country: CN (occurrence: CN)
  Receive Date: 20220201
  Receipt Date: 20220715
  Transmission Date: 20221027
  Serious: Yes (Life-Threatening, Hospitalization, Other)
  Sender: FDA-Public Use
  Company Number: CN-PFIZER INC-202200114916

PATIENT
  Age: 64 Year
  Sex: Female

DRUGS (16)
  1. LINEZOLID [Suspect]
     Active Substance: LINEZOLID
     Indication: Encephalitis
     Dosage: 600 MG, 2X/DAY
     Route: 042
  2. LINEZOLID [Suspect]
     Active Substance: LINEZOLID
     Indication: Meningitis
  3. LINEZOLID [Suspect]
     Active Substance: LINEZOLID
     Indication: Encephalitis
     Dosage: UNK
     Route: 048
  4. LINEZOLID [Suspect]
     Active Substance: LINEZOLID
     Indication: Meningitis
  5. RIFAPENTINE [Concomitant]
     Active Substance: RIFAPENTINE
     Indication: Encephalitis
     Dosage: 0.45 G, TWICE A WEEK
     Route: 048
  6. RIFAPENTINE [Concomitant]
     Active Substance: RIFAPENTINE
     Indication: Meningitis
  7. ETHAMBUTOL [Concomitant]
     Active Substance: ETHAMBUTOL HYDROCHLORIDE
     Indication: Meningitis
     Dosage: 750 MG, 1X/DAY
     Route: 048
  8. ETHAMBUTOL [Concomitant]
     Active Substance: ETHAMBUTOL HYDROCHLORIDE
     Indication: Encephalitis
  9. PYRAZINAMIDE [Concomitant]
     Active Substance: PYRAZINAMIDE
     Indication: Encephalitis
     Dosage: 0.5 G, 3X/DAY
     Route: 048
  10. PYRAZINAMIDE [Concomitant]
     Active Substance: PYRAZINAMIDE
     Indication: Meningitis
  11. LEVOFLOXACIN [Concomitant]
     Active Substance: LEVOFLOXACIN
     Indication: Encephalitis
     Dosage: 0.5 G, 1X/DAY
     Route: 042
  12. LEVOFLOXACIN [Concomitant]
     Active Substance: LEVOFLOXACIN
     Indication: Meningitis
  13. RIFAMPIN [Concomitant]
     Active Substance: RIFAMPIN
     Indication: Encephalitis
     Dosage: UNK
  14. RIFAMPIN [Concomitant]
     Active Substance: RIFAMPIN
     Indication: Meningitis
  15. ISONIAZID [Concomitant]
     Active Substance: ISONIAZID
     Indication: Encephalitis
     Dosage: 600 MG, 1X/DAY
     Route: 042
  16. ISONIAZID [Concomitant]
     Active Substance: ISONIAZID
     Indication: Meningitis

REACTIONS (4)
  - Lactic acidosis [Recovered/Resolved]
  - Renal injury [Recovered/Resolved]
  - Hyperkalaemia [Recovered/Resolved]
  - Off label use [Unknown]
